FAERS Safety Report 7042813-6 (Version None)
Quarter: 2010Q4

REPORT INFORMATION
  Report Type: 
  Country: None (occurrence: None)
  Receive Date: 20101013
  Receipt Date: 20091015
  Transmission Date: 20110411
  Serious: No
  Sender: FDA-Public Use
  Company Number: US-ASTRAZENECA-2009SE20447

PATIENT
  Age: 681 Month
  Sex: Male
  Weight: 86.2 kg

DRUGS (4)
  1. SYMBICORT [Suspect]
     Indication: CHRONIC OBSTRUCTIVE PULMONARY DISEASE
     Dosage: 2 PUFFS BID
     Route: 055
     Dates: start: 20090901
  2. BLOOD PRESSURE MEDICATION [Concomitant]
     Indication: BLOOD PRESSURE MANAGEMENT
  3. PROSTATE MEDICATION [Concomitant]
     Indication: BENIGN PROSTATIC HYPERPLASIA
  4. PROAIR HFA [Concomitant]
     Indication: APNOEIC ATTACK

REACTIONS (2)
  - DYSPNOEA [None]
  - NASOPHARYNGITIS [None]
